FAERS Safety Report 21886591 (Version 3)
Quarter: 2025Q3

REPORT INFORMATION
  Report Type: Report from Study
  Country: EU (occurrence: EU)
  Receive Date: 20230119
  Receipt Date: 20250711
  Transmission Date: 20251020
  Serious: Yes (Other)
  Sender: NOVARTIS
  Company Number: EU-002147023-NVSC2021IE256017

PATIENT
  Age: 54 Year
  Sex: Male

DRUGS (1)
  1. GILENYA [Suspect]
     Active Substance: FINGOLIMOD HYDROCHLORIDE
     Indication: Relapsing-remitting multiple sclerosis
     Dosage: 0.5 MG, QD
     Route: 048
     Dates: start: 20131015, end: 202307

REACTIONS (6)
  - Blood cholesterol increased [Not Recovered/Not Resolved]
  - Skin lesion [Recovering/Resolving]
  - Squamous cell carcinoma [Unknown]
  - White blood cell count decreased [Not Recovered/Not Resolved]
  - Lymphocyte count decreased [Not Recovered/Not Resolved]
  - White blood cell disorder [Unknown]

NARRATIVE: CASE EVENT DATE: 20210701
